FAERS Safety Report 16093229 (Version 1)
Quarter: 2019Q1

REPORT INFORMATION
  Report Type: Spontaneous
  Country: GB (occurrence: GB)
  Receive Date: 20190320
  Receipt Date: 20190320
  Transmission Date: 20190418
  Serious: Yes (Other)
  Sender: FDA-Public Use
  Company Number: GB-TEVA-2019-GB-1027309

PATIENT
  Age: 40 Year
  Sex: Female
  Weight: 56 kg

DRUGS (8)
  1. TRANEXAMIC ACID. [Suspect]
     Active Substance: TRANEXAMIC ACID
     Indication: HAEMORRHAGE
     Dosage: 1 GRAM
     Route: 042
     Dates: start: 20190218, end: 20190218
  2. LIDOCAINE. [Suspect]
     Active Substance: LIDOCAINE
     Indication: LOCAL ANAESTHESIA
     Dosage: 20 MG
     Route: 058
     Dates: start: 20190218, end: 20190218
  3. OXYTOCIN. [Suspect]
     Active Substance: OXYTOCIN
     Dosage: 5 IU
     Route: 042
     Dates: start: 20190218, end: 20190218
  4. CEFUROXIME. [Suspect]
     Active Substance: CEFUROXIME
     Indication: ANTIBIOTIC PROPHYLAXIS
     Dosage: 1.5 GRAM
     Route: 042
     Dates: start: 20190218, end: 20190218
  5. BUPIVACAINE. [Suspect]
     Active Substance: BUPIVACAINE
     Indication: SPINAL ANAESTHESIA
     Dosage: 9 MG
     Route: 037
     Dates: start: 20190218, end: 20190218
  6. FENTANYL. [Suspect]
     Active Substance: FENTANYL
     Indication: SPINAL ANAESTHESIA
     Dosage: 25 MCG
     Route: 037
     Dates: start: 20190218, end: 20190218
  7. ERGOMETRINE [Suspect]
     Active Substance: ERGONOVINE MALEATE
     Dosage: 500 MG
     Route: 030
     Dates: start: 20190218, end: 20190218
  8. METRONIDAZOLE. [Suspect]
     Active Substance: METRONIDAZOLE
     Indication: ANTIBIOTIC PROPHYLAXIS
     Dosage: 500 MG
     Route: 042
     Dates: start: 20190218, end: 20190218

REACTIONS (1)
  - Anaphylactic reaction [Recovered/Resolved]

NARRATIVE: CASE EVENT DATE: 20190218
